FAERS Safety Report 6180143-5 (Version None)
Quarter: 2009Q2

REPORT INFORMATION
  Report Type: 
  Country: None (occurrence: None)
  Receive Date: 20090505
  Receipt Date: 20090422
  Transmission Date: 20091009
  Serious: Yes (Hospitalization)
  Sender: FDA-Public Use
  Company Number: FR-GENENTECH-278378

PATIENT
  Sex: Female

DRUGS (7)
  1. MABTHERA [Interacting]
     Indication: RHEUMATOID ARTHRITIS
     Dosage: 1 G, QD
     Route: 042
     Dates: start: 20090216
  2. NAPROXEN [Suspect]
     Indication: RHEUMATOID ARTHRITIS
     Dosage: 1 UNK, PRN
     Route: 048
  3. SOLU-MEDROL [Interacting]
     Indication: RHEUMATOID ARTHRITIS
     Dosage: 100 MG, QD
     Route: 042
     Dates: start: 20090216, end: 20090216
  4. METHOTREXATE [Suspect]
     Indication: DRUG USE FOR UNKNOWN INDICATION
     Dosage: 10 MG, 1/WEEK
     Route: 048
     Dates: start: 20020101, end: 20090101
  5. PREDNISONE [Suspect]
     Indication: RHEUMATOID ARTHRITIS
     Dosage: 7.5 MG, UNK
     Route: 048
  6. ACETAMINOPHEN AND CODEINE PHOSPHATE [Concomitant]
     Indication: DRUG USE FOR UNKNOWN INDICATION
     Dosage: UNK
  7. CORTANCYL [Concomitant]
     Indication: DRUG USE FOR UNKNOWN INDICATION
     Dosage: UNK

REACTIONS (2)
  - DRUG INTERACTION [None]
  - GASTROINTESTINAL PERFORATION [None]
